FAERS Safety Report 10670732 (Version 3)
Quarter: 2015Q1

REPORT INFORMATION
  Report Type: Spontaneous
  Country: US (occurrence: US)
  Receive Date: 20141223
  Receipt Date: 20150318
  Transmission Date: 20150720
  Serious: Yes (Hospitalization)
  Sender: FDA-Public Use
  Company Number: US-PFIZER INC-2014345370

PATIENT
  Age: 92 Year
  Sex: Female
  Weight: 55 kg

DRUGS (11)
  1. WARFARIN [Concomitant]
     Active Substance: WARFARIN
     Dosage: UNK
  2. PYRIDOSTIGMINE BROMIDE. [Concomitant]
     Active Substance: PYRIDOSTIGMINE BROMIDE
     Dosage: UNK
  3. METHIMAZOLE. [Concomitant]
     Active Substance: METHIMAZOLE
     Dosage: 5 MG, UNK
  4. LATANOPROST. [Concomitant]
     Active Substance: LATANOPROST
     Dosage: UNK
  5. FISH OIL [Concomitant]
     Active Substance: FISH OIL
     Dosage: UNK, UNK
  6. CALTRATE [Concomitant]
     Active Substance: CALCIUM CARBONATE
     Dosage: UNK
  7. SIMVASTATIN. [Concomitant]
     Active Substance: SIMVASTATIN
     Dosage: 40 MG, UNK
  8. PREVACID [Concomitant]
     Active Substance: LANSOPRAZOLE
     Dosage: 30 ?G, UNK
  9. DORZOLAMIDE HYDROCHLORIDE, TIMOLOL [Concomitant]
     Dosage: UNK
  10. COQ 10 [Concomitant]
     Active Substance: UBIDECARENONE
     Dosage: 200 MG, UNK
  11. TIKOSYN [Suspect]
     Active Substance: DOFETILIDE
     Indication: ATRIAL FIBRILLATION
     Dosage: 125 ?G, 2X/DAY
     Route: 048
     Dates: start: 2010, end: 2012

REACTIONS (1)
  - Drug ineffective [Recovered/Resolved]

NARRATIVE: CASE EVENT DATE: 2010
